FAERS Safety Report 9358772 (Version 2)
Quarter: 2013Q3

REPORT INFORMATION
  Report Type: Report from Study
  Country: US (occurrence: US)
  Receive Date: 20130620
  Receipt Date: 20130715
  Transmission Date: 20140515
  Serious: Yes (Hospitalization, Other)
  Sender: FDA-Public Use
  Company Number: US-ELI_LILLY_AND_COMPANY-US201109003941

PATIENT
  Age: 57 Year
  Sex: Female

DRUGS (4)
  1. TERIPARATIDE [Suspect]
     Indication: OSTEOPOROSIS
     Dosage: 20 UG, QD
     Route: 058
     Dates: start: 20110816
  2. TERIPARATIDE [Suspect]
     Dosage: 20 UG, QD
     Route: 058
  3. TERIPARATIDE [Suspect]
     Dosage: 20 UG, QD
     Route: 058
  4. TERIPARATIDE [Suspect]
     Dosage: 20 UG, QD
     Route: 058

REACTIONS (10)
  - Pneumonia aspiration [Unknown]
  - Crohn^s disease [Unknown]
  - Blood parathyroid hormone increased [Recovered/Resolved]
  - Blood parathyroid hormone abnormal [Unknown]
  - Foot fracture [Not Recovered/Not Resolved]
  - Gingival bleeding [Unknown]
  - Gastrooesophageal reflux disease [Unknown]
  - Pneumonia [Unknown]
  - Malaise [Unknown]
  - Thoracic vertebral fracture [Unknown]
